FAERS Safety Report 16942849 (Version 2)
Quarter: 2020Q1

REPORT INFORMATION
  Report Type: Spontaneous
  Country: GB (occurrence: GB)
  Receive Date: 20191021
  Receipt Date: 20200124
  Transmission Date: 20200409
  Serious: Yes (Other)
  Sender: FDA-Public Use
  Company Number: GB-MYLANLABS-2019M1098373

PATIENT
  Age: 59 Year
  Sex: Male

DRUGS (6)
  1. ARIPIPRAZOLE. [Suspect]
     Active Substance: ARIPIPRAZOLE
     Indication: PRODUCT USED FOR UNKNOWN INDICATION
     Dosage: UNK
     Route: 065
  2. AMLODIPINE [Concomitant]
     Active Substance: AMLODIPINE BESYLATE
     Indication: HYPERTENSION
     Dosage: 10 MILLIGRAM, QD
  3. CHOLECALCIFEROL [Concomitant]
     Active Substance: CHOLECALCIFEROL
     Indication: VITAMIN SUPPLEMENTATION
     Dosage: 1600 DOSAGE FORM, QD
  4. TRIHEXYPHENIDYL [Concomitant]
     Active Substance: TRIHEXYPHENIDYL
     Indication: EXTRAPYRAMIDAL DISORDER
     Dosage: 4 MILLIGRAM, QD
  5. RISPERDAL CONSTA [Suspect]
     Active Substance: RISPERIDONE
     Indication: PRODUCT USED FOR UNKNOWN INDICATION
     Dosage: UNK
     Route: 030
  6. AMISULPRIDE [Suspect]
     Active Substance: AMISULPRIDE
     Indication: PRODUCT USED FOR UNKNOWN INDICATION
     Dosage: UNK
     Route: 048

REACTIONS (3)
  - Aggression [Unknown]
  - Electrocardiogram QT prolonged [Recovered/Resolved]
  - Condition aggravated [Unknown]

NARRATIVE: CASE EVENT DATE: 2017
